FAERS Safety Report 21073218 (Version 2)
Quarter: 2025Q1

REPORT INFORMATION
  Report Type: Report from Study
  Country: JP (occurrence: JP)
  Receive Date: 20220712
  Receipt Date: 20250127
  Transmission Date: 20250409
  Serious: Yes (Death)
  Sender: AMGEN
  Company Number: None

PATIENT
  Age: 8 Decade
  Sex: Male

DRUGS (24)
  1. IVABRADINE [Suspect]
     Active Substance: IVABRADINE
     Indication: Cardiac failure chronic
     Route: 048
  2. DENOSUMAB [Concomitant]
     Active Substance: DENOSUMAB
     Indication: Product used for unknown indication
  3. DEMSER [Suspect]
     Active Substance: METYROSINE
     Indication: Blood catecholamines increased
     Dosage: 250 MG, QD
     Route: 048
     Dates: start: 20200819, end: 20201110
  4. DEMSER [Suspect]
     Active Substance: METYROSINE
     Dosage: 250 MG, BID
     Route: 048
     Dates: start: 20201111, end: 20201215
  5. DEMSER [Suspect]
     Active Substance: METYROSINE
     Dosage: 250 MG, TID
     Route: 048
     Dates: start: 20201216, end: 20210119
  6. DEMSER [Suspect]
     Active Substance: METYROSINE
     Dosage: 250 MG, QID
     Route: 048
     Dates: start: 20210120, end: 20210317
  7. DEMSER [Suspect]
     Active Substance: METYROSINE
     Dosage: 1250 MG, QD
     Route: 048
     Dates: start: 20210318, end: 20210320
  8. DEMSER [Suspect]
     Active Substance: METYROSINE
     Dosage: 1500 MG, QD
     Route: 048
     Dates: start: 20210321, end: 20210321
  9. DEMSER [Suspect]
     Active Substance: METYROSINE
     Dosage: 1750 MG, QD
     Route: 048
     Dates: start: 20210321, end: 20210322
  10. DEMSER [Suspect]
     Active Substance: METYROSINE
     Dosage: 500 MG, QID
     Route: 048
     Dates: start: 20210323, end: 20210325
  11. DEMSER [Suspect]
     Active Substance: METYROSINE
     Dosage: 1500 MG, QD
     Route: 048
     Dates: start: 20210326, end: 20210326
  12. DEMSER [Suspect]
     Active Substance: METYROSINE
     Dosage: 250 MG, QID
     Route: 048
     Dates: start: 20210327, end: 20210520
  13. SITAGLIPTIN [Suspect]
     Active Substance: SITAGLIPTIN
     Indication: Type 2 diabetes mellitus
     Route: 048
  14. DOXAZOSIN [Concomitant]
     Active Substance: DOXAZOSIN MESYLATE
     Indication: Product used for unknown indication
  15. BISOPROLOL FUMARATE [Concomitant]
     Active Substance: BISOPROLOL FUMARATE
     Indication: Product used for unknown indication
  16. FEBUXOSTAT [Concomitant]
     Active Substance: FEBUXOSTAT
     Indication: Product used for unknown indication
  17. CALCIUM CARBONATE\CHOLECALCIFEROL\MAGNESIUM CARBONATE [Concomitant]
     Active Substance: CALCIUM CARBONATE\CHOLECALCIFEROL\MAGNESIUM CARBONATE
     Indication: Product used for unknown indication
  18. VONOPRAZAN FUMARATE [Concomitant]
     Active Substance: VONOPRAZAN FUMARATE
     Indication: Product used for unknown indication
  19. MOSAPRIDE CITRATE [Concomitant]
     Active Substance: MOSAPRIDE CITRATE
     Indication: Product used for unknown indication
  20. DOTINURAD [Concomitant]
     Active Substance: DOTINURAD
     Indication: Product used for unknown indication
  21. AZOSEMIDE [Concomitant]
     Active Substance: AZOSEMIDE
     Indication: Product used for unknown indication
  22. MIRCERA [Concomitant]
     Active Substance: METHOXY POLYETHYLENE GLYCOL-EPOETIN BETA
     Indication: Product used for unknown indication
  23. HYDROXYZINE HYDROCHLORIDE [Concomitant]
     Active Substance: HYDROXYZINE HYDROCHLORIDE
     Indication: Product used for unknown indication
  24. ATROPINE SULFATE [Concomitant]
     Active Substance: ATROPINE SULFATE
     Indication: Product used for unknown indication

REACTIONS (1)
  - Somnolence [Fatal]

NARRATIVE: CASE EVENT DATE: 20210325
